FAERS Safety Report 7578034-8 (Version None)
Quarter: 2011Q2

REPORT INFORMATION
  Report Type: 
  Country: None (occurrence: None)
  Receive Date: 20110621
  Receipt Date: 20110609
  Transmission Date: 20111010
  Serious: Yes (Other)
  Sender: FDA-Public Use
  Company Number: 2011SP027373

PATIENT
  Age: 30 Year
  Sex: Female
  Weight: 92 kg

DRUGS (3)
  1. NUVARING [Suspect]
     Indication: CONTRACEPTION
     Dosage: QM;VAG ; QM;VAG
     Route: 067
     Dates: start: 20100101, end: 20110301
  2. NUVARING [Suspect]
     Indication: CONTRACEPTION
     Dosage: QM;VAG ; QM;VAG
     Route: 067
     Dates: start: 20110516
  3. PARGEVERINE HYDROCHLORIDE [Concomitant]

REACTIONS (3)
  - CHOLELITHIASIS [None]
  - INAPPROPRIATE SCHEDULE OF DRUG ADMINISTRATION [None]
  - INCORRECT DRUG ADMINISTRATION DURATION [None]
